FAERS Safety Report 10708525 (Version 1)
Quarter: 2015Q1

REPORT INFORMATION
  Report Type: Spontaneous
  Country: IN (occurrence: IN)
  Receive Date: 20150113
  Receipt Date: 20150113
  Transmission Date: 20150721
  Serious: Yes (Other)
  Sender: FDA-Public Use
  Company Number: IN-MYLANLABS-2015M1000350

PATIENT

DRUGS (5)
  1. ESCITALOPRAM [Concomitant]
     Active Substance: ESCITALOPRAM OXALATE
     Indication: PANIC DISORDER
     Dosage: 20MG
     Route: 065
  2. CLONAZEPAM. [Concomitant]
     Active Substance: CLONAZEPAM
     Indication: PANIC DISORDER
     Dosage: 1MG
     Route: 065
  3. CLOZAPINE. [Suspect]
     Active Substance: CLOZAPINE
     Indication: OFF LABEL USE
  4. CLOZAPINE. [Suspect]
     Active Substance: CLOZAPINE
     Indication: DYSTONIA
     Dosage: ABOVE 75MG
     Route: 065
  5. TRIFLUOPERAZINE [Suspect]
     Active Substance: TRIFLUOPERAZINE\TRIFLUOPERAZINE HYDROCHLORIDE
     Indication: AGITATION
     Dosage: 10 MG
     Route: 065

REACTIONS (5)
  - Electrocardiogram T wave inversion [Unknown]
  - Dystonia [Recovering/Resolving]
  - Depression [None]
  - Tachycardia [Unknown]
  - Speech disorder [None]
